FAERS Safety Report 25499449 (Version 2)
Quarter: 2025Q3

REPORT INFORMATION
  Report Type: Report from Study
  Country: TW (occurrence: TW)
  Receive Date: 20250701
  Receipt Date: 20250725
  Transmission Date: 20251020
  Serious: Yes (Death, Hospitalization)
  Sender: JOHNSON AND JOHNSON
  Company Number: TW-JNJFOC-20250636011

PATIENT
  Age: 69 Year
  Sex: Female

DRUGS (1)
  1. RYBREVANT [Suspect]
     Active Substance: AMIVANTAMAB-VMJW
     Indication: Non-small cell lung cancer
     Route: 065
     Dates: start: 20250203, end: 20250610

REACTIONS (2)
  - Death [Fatal]
  - Skin disorder [Unknown]
